FAERS Safety Report 7093174-8 (Version None)
Quarter: 2010Q4

REPORT INFORMATION
  Report Type: 
  Country: None (occurrence: None)
  Receive Date: 20101110
  Receipt Date: 20080820
  Transmission Date: 20110411
  Serious: No
  Sender: FDA-Public Use
  Company Number: US-KINGPHARMUSA00001-K200801010

PATIENT
  Sex: Female

DRUGS (2)
  1. LEVOXYL [Suspect]
     Dosage: ^.50 MG,^ QD
     Route: 048
     Dates: start: 20070101, end: 20080101
  2. LEVOXYL [Suspect]
     Dosage: ^.75 MG,^ QD
     Route: 048
     Dates: start: 20080101

REACTIONS (2)
  - DISTURBANCE IN ATTENTION [None]
  - HOT FLUSH [None]
